FAERS Safety Report 5380309-8 (Version None)
Quarter: 2007Q3

REPORT INFORMATION
  Report Type: 
  Country: None (occurrence: None)
  Receive Date: 20070706
  Receipt Date: 20070516
  Transmission Date: 20080115
  Serious: No
  Sender: FDA-Public Use
  Company Number: A0651587A

PATIENT
  Age: 49 Year
  Sex: Female

DRUGS (6)
  1. TYKERB [Suspect]
     Indication: BREAST CANCER
     Dosage: 1250MG PER DAY
     Route: 048
     Dates: start: 20070505
  2. XELODA [Concomitant]
  3. NEURONTIN [Concomitant]
  4. ANACID [Concomitant]
  5. LEXAPRO [Concomitant]
  6. LORAZEPAM [Concomitant]

REACTIONS (9)
  - ABDOMINAL PAIN [None]
  - DECREASED APPETITE [None]
  - DIARRHOEA [None]
  - EPISTAXIS [None]
  - FATIGUE [None]
  - MOUTH ULCERATION [None]
  - NAUSEA [None]
  - PRURITUS [None]
  - RASH [None]
